FAERS Safety Report 6937024-6 (Version None)
Quarter: 2010Q3

REPORT INFORMATION
  Report Type: 
  Country: None (occurrence: None)
  Receive Date: 20100823
  Receipt Date: 20100809
  Transmission Date: 20110219
  Serious: Yes (Other)
  Sender: FDA-Public Use
  Company Number: PHHY2010IE53002

PATIENT
  Age: 70 Year
  Sex: Female

DRUGS (6)
  1. ZOLEDRONIC [Suspect]
     Dosage: UNK
     Dates: start: 20091028, end: 20091107
  2. CALCIUM [Concomitant]
     Dosage: UNK
  3. DOANS [Concomitant]
     Dosage: UNK
  4. PRILOSEC [Concomitant]
     Dosage: 20 MG
  5. DAKTARIN [Concomitant]
  6. ANTIBIOTICS [Concomitant]
     Dosage: UNK

REACTIONS (2)
  - SKIN DISCOLOURATION [None]
  - TOOTH LOSS [None]
